FAERS Safety Report 6771882-3 (Version None)
Quarter: 2010Q2

REPORT INFORMATION
  Report Type: 
  Country: None (occurrence: None)
  Receive Date: 20100616
  Receipt Date: 20100420
  Transmission Date: 20101027
  Serious: No
  Sender: FDA-Public Use
  Company Number: US-ASTRAZENECA-2010SE17571

PATIENT
  Age: 44 Year
  Sex: Female
  Weight: 65.8 kg

DRUGS (5)
  1. ENTOCORT EC [Suspect]
     Indication: COLITIS
     Route: 048
     Dates: start: 20100101
  2. HUMIRA [Suspect]
     Indication: ANKYLOSING SPONDYLITIS
     Dosage: 40 MG/0.8 ML PEN
     Route: 058
     Dates: start: 20091001
  3. OMEPRAZOLE [Concomitant]
  4. MANY VITAMINS [Concomitant]
  5. VINCENTS [Concomitant]

REACTIONS (3)
  - ARTHRALGIA [None]
  - COLITIS [None]
  - DRUG INEFFECTIVE [None]
